FAERS Safety Report 10420666 (Version 1)
Quarter: 2014Q3

REPORT INFORMATION
  Report Type: Spontaneous
  Country: US (occurrence: None)
  Receive Date: 20140829
  Receipt Date: 20140829
  Transmission Date: 20150326
  Serious: Yes (Disabling, Other)
  Sender: FDA-Public Use
  Company Number: None

PATIENT
  Age: 16 Year
  Sex: Male
  Weight: 86.18 kg

DRUGS (2)
  1. RISPERIDONE 1 MG [Suspect]
     Active Substance: RISPERIDONE
     Indication: SCHIZOPHRENIA
     Dates: start: 19990412, end: 20131205
  2. RISPERIDONE 1 MG [Suspect]
     Active Substance: RISPERIDONE
     Indication: INSOMNIA
     Dates: start: 19990412, end: 20131205

REACTIONS (1)
  - Gynaecomastia [None]
